FAERS Safety Report 12877255 (Version 1)
Quarter: 2016Q4

REPORT INFORMATION
  Report Type: Spontaneous
  Country: US (occurrence: US)
  Receive Date: 20161023
  Receipt Date: 20161023
  Transmission Date: 20170207
  Serious: Yes (Hospitalization, Other)
  Sender: FDA-Public Use
  Company Number: None

PATIENT
  Age: 77 Year
  Sex: Male
  Weight: 81 kg

DRUGS (11)
  1. AMLODIPINE [Concomitant]
     Active Substance: AMLODIPINE BESYLATE
  2. MAGNESIUM [Concomitant]
     Active Substance: MAGNESIUM
  3. UBIQUINOL [Concomitant]
     Active Substance: UBIQUINOL
  4. SOTALOL. [Concomitant]
     Active Substance: SOTALOL
  5. ELIQUIS [Concomitant]
     Active Substance: APIXABAN
  6. VITAMIN C [Concomitant]
     Active Substance: ASCORBIC ACID
  7. R-LIPOIC ACID [Concomitant]
  8. ZYFLAMEND [Concomitant]
  9. DOXAZOZIN [Concomitant]
  10. MORE EPA (OMEGA 3) [Concomitant]
  11. HYOSCYAMINE SULFATE SUBLINGUAL T [Suspect]
     Active Substance: HYOSCYAMINE SULFATE
     Indication: ABDOMINAL RIGIDITY
     Dosage: ?          QUANTITY:5 TABLET(S);?
     Route: 060
     Dates: start: 20160324, end: 20160501

REACTIONS (1)
  - Atrial fibrillation [None]

NARRATIVE: CASE EVENT DATE: 20160510
